FAERS Safety Report 6007059-9 (Version None)
Quarter: 2008Q4

REPORT INFORMATION
  Report Type: 
  Country: None (occurrence: None)
  Receive Date: 20081217
  Receipt Date: 20080102
  Transmission Date: 20090506
  Serious: No
  Sender: FDA-Public Use
  Company Number: US-ASTRAZENECA-2008UW00120

PATIENT
  Age: 65 Year
  Sex: Female
  Weight: 65.8 kg

DRUGS (4)
  1. CRESTOR [Suspect]
     Indication: BLOOD CHOLESTEROL INCREASED
     Route: 048
  2. CRESTOR [Suspect]
     Route: 048
  3. ATIVAN [Concomitant]
  4. WELLBUTRIN [Concomitant]

REACTIONS (9)
  - ALOPECIA [None]
  - ANXIETY [None]
  - ARTHRALGIA [None]
  - BACK PAIN [None]
  - INSOMNIA [None]
  - MYALGIA [None]
  - RESTLESSNESS [None]
  - RHINITIS [None]
  - SINUSITIS [None]
